FAERS Safety Report 5792707-9 (Version None)
Quarter: 2008Q2

REPORT INFORMATION
  Report Type: 
  Country: None (occurrence: None)
  Receive Date: 20080624
  Receipt Date: 20080616
  Transmission Date: 20081010
  Serious: Yes (Other)
  Sender: FDA-Public Use
  Company Number: 163-21880-08061016

PATIENT
  Age: 43 Year
  Sex: Female

DRUGS (2)
  1. REVLIMID [Suspect]
     Indication: APHTHOUS STOMATITIS
     Dosage: SEE IMAGE
     Route: 048
     Dates: start: 20070501, end: 20080516
  2. REVLIMID [Suspect]
     Indication: APHTHOUS STOMATITIS
     Dosage: SEE IMAGE
     Route: 048
     Dates: start: 20080618

REACTIONS (3)
  - DEAFNESS [None]
  - HEADACHE [None]
  - SYNCOPE [None]
